FAERS Safety Report 4377510-9 (Version None)
Quarter: 2004Q2

REPORT INFORMATION
  Report Type: 
  Country: None (occurrence: None)
  Receive Date: 20040609
  Receipt Date: 20040512
  Transmission Date: 20050107
  Serious: No
  Sender: FDA-Public Use
  Company Number: 2004213446US

PATIENT
  Sex: Female

DRUGS (7)
  1. BEXTRA [Suspect]
     Indication: ARTHRITIS
     Dosage: 10 MG, QD
     Dates: start: 20040501, end: 20040507
  2. DITROPAN [Concomitant]
  3. NORVASC [Concomitant]
  4. ^NORCALCIUM NASAL SPRAY^ [Concomitant]
  5. GLUCOSAMINE [Concomitant]
  6. GARLIC [Concomitant]
  7. CALCIUM [Concomitant]

REACTIONS (1)
  - FEELING ABNORMAL [None]
